FAERS Safety Report 4850890-3 (Version None)
Quarter: 2005Q4

REPORT INFORMATION
  Report Type: 
  Country: None (occurrence: None)
  Receive Date: 20051212
  Receipt Date: 20051202
  Transmission Date: 20060501
  Serious: Yes (Other)
  Sender: FDA-Public Use
  Company Number: US-GLAXOSMITHKLINE-A0585175A

PATIENT
  Sex: Male
  Weight: 2.7 kg

DRUGS (2)
  1. COMBIVIR [Suspect]
     Indication: HIV INFECTION
     Dosage: 1TAB TWICE PER DAY
     Dates: start: 20050713
  2. VIRACEPT [Concomitant]
     Indication: HIV INFECTION
     Dosage: 1250MG TWICE PER DAY

REACTIONS (2)
  - DRUG EXPOSURE DURING PREGNANCY [None]
  - TALIPES [None]
